FAERS Safety Report 17998725 (Version 2)
Quarter: 2021Q2

REPORT INFORMATION
  Report Type: Spontaneous
  Country: None (occurrence: US)
  Receive Date: 20200709
  Receipt Date: 20210521
  Transmission Date: 20210717
  Serious: Yes (Other)
  Sender: FDA-Public Use
  Company Number: US-GLAXOSMITHKLINE-US2020124581

PATIENT
  Sex: Male

DRUGS (65)
  1. RANITIDINE. [Suspect]
     Active Substance: RANITIDINE
  2. RANITIDINE. [Suspect]
     Active Substance: RANITIDINE
     Dosage: UNK
  3. RANITIDINE. [Suspect]
     Active Substance: RANITIDINE
     Dosage: UNK
  4. ZANTAC [Suspect]
     Active Substance: RANITIDINE HYDROCHLORIDE
     Dosage: UNK
  5. ZANTAC [Suspect]
     Active Substance: RANITIDINE HYDROCHLORIDE
     Dosage: UNK
  6. ZANTAC [Suspect]
     Active Substance: RANITIDINE HYDROCHLORIDE
     Dosage: UNK
  7. ZANTAC [Suspect]
     Active Substance: RANITIDINE HYDROCHLORIDE
     Dosage: UNK
  8. ZANTAC [Suspect]
     Active Substance: RANITIDINE HYDROCHLORIDE
     Dosage: UNK
  9. ZANTAC [Suspect]
     Active Substance: RANITIDINE HYDROCHLORIDE
     Dosage: UNK
  10. RANITIDINE. [Suspect]
     Active Substance: RANITIDINE
     Indication: GASTRIC ULCER
     Dosage: 150 MG, QD
     Route: 065
     Dates: start: 201602, end: 201811
  11. RANITIDINE. [Suspect]
     Active Substance: RANITIDINE
     Dosage: UNK
  12. RANITIDINE. [Suspect]
     Active Substance: RANITIDINE
     Dosage: UNK
  13. RANITIDINE. [Suspect]
     Active Substance: RANITIDINE
     Indication: DYSPEPSIA
     Dosage: 75 MG BOTH
     Route: 065
     Dates: start: 201602, end: 201811
  14. RANITIDINE. [Suspect]
     Active Substance: RANITIDINE
     Dosage: UNK
  15. ZANTAC [Suspect]
     Active Substance: RANITIDINE HYDROCHLORIDE
     Dosage: UNK
  16. RANITIDINE HCI [Suspect]
     Active Substance: RANITIDINE HYDROCHLORIDE
     Dosage: UNK
  17. ZANTAC [Suspect]
     Active Substance: RANITIDINE HYDROCHLORIDE
     Indication: DYSPEPSIA
     Dosage: UNK UNK, QD
     Route: 065
     Dates: start: 201602, end: 201811
  18. ZANTAC [Suspect]
     Active Substance: RANITIDINE HYDROCHLORIDE
     Indication: GASTRIC ULCER
     Dosage: UNK
  19. ZANTAC [Suspect]
     Active Substance: RANITIDINE HYDROCHLORIDE
     Indication: DYSPEPSIA
     Dosage: 75 MG BOTH
     Route: 065
     Dates: start: 201602, end: 201811
  20. RANITIDINE. [Suspect]
     Active Substance: RANITIDINE
     Indication: DYSPEPSIA
     Dosage: 75 MG BOTH
     Route: 065
     Dates: start: 201602, end: 201811
  21. ZANTAC [Suspect]
     Active Substance: RANITIDINE HYDROCHLORIDE
     Indication: DYSPEPSIA
     Dosage: 25 MG/ML, QD
     Route: 065
     Dates: start: 201602, end: 201811
  22. ZANTAC [Suspect]
     Active Substance: RANITIDINE HYDROCHLORIDE
     Dosage: UNK
  23. ZANTAC [Suspect]
     Active Substance: RANITIDINE HYDROCHLORIDE
     Indication: GASTRIC ULCER
     Dosage: 150 MG, QD
     Route: 065
     Dates: start: 201602, end: 201811
  24. RANITIDINE. [Suspect]
     Active Substance: RANITIDINE
     Indication: GASTRIC ULCER
     Dosage: 150 MG, QD
     Route: 065
     Dates: start: 201602, end: 201811
  25. ZANTAC [Suspect]
     Active Substance: RANITIDINE HYDROCHLORIDE
     Indication: DYSPEPSIA
     Dosage: 75 MG BOTH
     Route: 065
     Dates: start: 201602, end: 201811
  26. ZANTAC [Suspect]
     Active Substance: RANITIDINE HYDROCHLORIDE
     Indication: DYSPEPSIA
     Dosage: 25 MG BOTH
     Route: 065
     Dates: start: 201602, end: 201811
  27. RANITIDINE. [Suspect]
     Active Substance: RANITIDINE
     Indication: DYSPEPSIA
     Dosage: 25 MG BOTH
     Route: 065
     Dates: start: 201602, end: 201811
  28. ZANTAC [Suspect]
     Active Substance: RANITIDINE HYDROCHLORIDE
     Indication: DYSPEPSIA
     Dosage: UNK UNK, QD
     Route: 065
     Dates: start: 201602, end: 201811
  29. ZANTAC [Suspect]
     Active Substance: RANITIDINE HYDROCHLORIDE
     Dosage: UNK
  30. RANITIDINE. [Suspect]
     Active Substance: RANITIDINE
     Dosage: UNK
  31. RANITIDINE HCI [Suspect]
     Active Substance: RANITIDINE HYDROCHLORIDE
  32. ZANTAC [Suspect]
     Active Substance: RANITIDINE HYDROCHLORIDE
  33. ZANTAC [Suspect]
     Active Substance: RANITIDINE HYDROCHLORIDE
     Indication: DYSPEPSIA
     Dosage: 25 MG BOTH
     Route: 065
     Dates: start: 201602, end: 201811
  34. ZANTAC [Suspect]
     Active Substance: RANITIDINE HYDROCHLORIDE
     Dosage: UNK
  35. RANITIDINE CAPSULE [Suspect]
     Active Substance: RANITIDINE
     Indication: DYSPEPSIA
     Dosage: 25 MG BOTH
     Route: 065
     Dates: start: 201602, end: 201811
  36. RANITIDINE CAPSULE [Suspect]
     Active Substance: RANITIDINE
     Indication: DYSPEPSIA
     Dosage: 75 MG BOTH
     Route: 065
     Dates: start: 201602, end: 201811
  37. RANITIDINE CAPSULE [Suspect]
     Active Substance: RANITIDINE
     Indication: GASTRIC ULCER
     Dosage: 25 MG BOTH
     Route: 065
     Dates: start: 201602, end: 201811
  38. RANITIDINE HCI [Suspect]
     Active Substance: RANITIDINE HYDROCHLORIDE
     Dosage: UNK
  39. ZANTAC [Suspect]
     Active Substance: RANITIDINE HYDROCHLORIDE
     Indication: DYSPEPSIA
     Dosage: UNK
  40. ZANTAC [Suspect]
     Active Substance: RANITIDINE HYDROCHLORIDE
     Indication: DYSPEPSIA
     Dosage: UNK
  41. ZANTAC [Suspect]
     Active Substance: RANITIDINE HYDROCHLORIDE
     Indication: GASTRIC ULCER
     Dosage: 150 MG, QD
     Route: 065
     Dates: start: 201602, end: 201811
  42. RANITIDINE CAPSULE [Suspect]
     Active Substance: RANITIDINE
     Dosage: 150 MG, QD
     Route: 065
     Dates: start: 201602, end: 201811
  43. RANITIDINE. [Suspect]
     Active Substance: RANITIDINE
     Indication: DYSPEPSIA
     Dosage: 25 MG BOTH
     Route: 065
     Dates: start: 201602, end: 201811
  44. ZANTAC [Suspect]
     Active Substance: RANITIDINE HYDROCHLORIDE
     Indication: DYSPEPSIA
  45. ZANTAC [Suspect]
     Active Substance: RANITIDINE HYDROCHLORIDE
     Indication: GASTRIC ULCER
     Dosage: UNK UNK, QD
     Route: 065
     Dates: start: 201602, end: 201811
  46. ZANTAC [Suspect]
     Active Substance: RANITIDINE HYDROCHLORIDE
     Dosage: UNK
  47. ZANTAC [Suspect]
     Active Substance: RANITIDINE HYDROCHLORIDE
     Dosage: UNK
  48. ZANTAC [Suspect]
     Active Substance: RANITIDINE HYDROCHLORIDE
     Dosage: UNK
  49. ZANTAC [Suspect]
     Active Substance: RANITIDINE HYDROCHLORIDE
     Indication: DYSPEPSIA
     Dosage: 25 MG BOTH
     Route: 065
     Dates: start: 201602, end: 201811
  50. ZANTAC [Suspect]
     Active Substance: RANITIDINE HYDROCHLORIDE
     Indication: DYSPEPSIA
     Dosage: 75 MG BOTH
     Route: 065
     Dates: start: 201602, end: 201811
  51. ZANTAC [Suspect]
     Active Substance: RANITIDINE HYDROCHLORIDE
     Indication: GASTRIC ULCER
     Dosage: 150 MG, QD
     Route: 065
     Dates: start: 201602, end: 201811
  52. RANITIDINE. [Suspect]
     Active Substance: RANITIDINE
     Indication: DYSPEPSIA
     Dosage: 75 MG BOTH
     Route: 065
     Dates: start: 201602, end: 201811
  53. RANITIDINE. [Suspect]
     Active Substance: RANITIDINE
     Indication: GASTRIC ULCER
     Dosage: 150 MG, QD
     Route: 065
     Dates: start: 201602, end: 201811
  54. RANITIDINE. [Suspect]
     Active Substance: RANITIDINE
     Dosage: UNK
  55. RANITIDINE. [Suspect]
     Active Substance: RANITIDINE
     Dosage: UNK
  56. RANITIDINE HCI [Suspect]
     Active Substance: RANITIDINE HYDROCHLORIDE
     Dosage: UNK
  57. RANITIDINE HCI [Suspect]
     Active Substance: RANITIDINE HYDROCHLORIDE
     Dosage: UNK
  58. ZANTAC [Suspect]
     Active Substance: RANITIDINE HYDROCHLORIDE
     Indication: GASTRIC ULCER
     Dosage: UNK
  59. ZANTAC [Suspect]
     Active Substance: RANITIDINE HYDROCHLORIDE
     Dosage: UNK
  60. ZANTAC [Suspect]
     Active Substance: RANITIDINE HYDROCHLORIDE
     Dosage: UNK
  61. ZANTAC [Suspect]
     Active Substance: RANITIDINE HYDROCHLORIDE
     Dosage: UNK
  62. RANITIDINE CAPSULE [Suspect]
     Active Substance: RANITIDINE
     Dosage: 75 MG BOTH
     Route: 065
     Dates: start: 201602, end: 201811
  63. RANITIDINE. [Suspect]
     Active Substance: RANITIDINE
     Indication: DYSPEPSIA
     Dosage: 25 MG BOTH
     Route: 065
     Dates: start: 201602, end: 201811
  64. RANITIDINE. [Suspect]
     Active Substance: RANITIDINE
     Dosage: UNK
  65. RANITIDINE. [Suspect]
     Active Substance: RANITIDINE
     Dosage: UNK

REACTIONS (1)
  - Gastric cancer [Unknown]
